FAERS Safety Report 10884061 (Version 1)
Quarter: 2015Q1

REPORT INFORMATION
  Report Type: Spontaneous
  Country: JP (occurrence: None)
  Receive Date: 20150227
  Receipt Date: 20150227
  Transmission Date: 20150721
  Serious: Yes (Death, Other)
  Sender: FDA-Public Use
  Company Number: AXC-2015-000076

PATIENT
  Age: 79 Year
  Sex: Male
  Weight: 54 kg

DRUGS (9)
  1. POTASSIUM CHLORIDE (POTASIUM CHLORIDE) UNKNOWN [Suspect]
     Active Substance: POTASSIUM CHLORIDE
     Indication: MINERAL SUPPLEMENTATION
     Route: 048
     Dates: start: 20141030, end: 20141111
  2. SUCRALFATE (SUCRALFATE)  UNKNOWN [Suspect]
     Active Substance: SUCRALFATE
     Indication: GASTRITIS PROPHYLAXIS
     Route: 048
     Dates: start: 20140703, end: 20141111
  3. PIMOBENDAN (PIMOBENDAN) TABLET [Suspect]
     Active Substance: PIMOBENDAN
     Indication: CARDIAC FAILURE
     Route: 048
     Dates: start: 201202, end: 20141111
  4. LUPRAC (TORASEMIDE) TABLET [Suspect]
     Active Substance: TORSEMIDE
     Indication: CARDIAC FAILURE
     Route: 048
     Dates: start: 20131017, end: 20141111
  5. MEXILETINE /00406602/ (MEXILETINE HYDROCHLORIDE) TABLET [Suspect]
     Active Substance: MEXILETINE
     Indication: VENTRICULAR EXTRASYSTOLES
     Route: 048
     Dates: start: 201202, end: 20141111
  6. FEBUXOSTAT (FEBUXOSTAT) UNKNOWN [Suspect]
     Active Substance: FEBUXOSTAT
     Indication: HYPERURICAEMIA
     Route: 048
     Dates: start: 201202, end: 20141111
  7. OLMETEC (OLMESARTAN MEDOXOMIL) TABLET [Suspect]
     Active Substance: OLMESARTAN MEDOXOMIL
     Indication: CARDIAC FAILURE
     Route: 048
     Dates: start: 201202, end: 20141111
  8. ONEALFA [Concomitant]
     Active Substance: ALFACALCIDOL
     Indication: OSTEOPOROSIS
     Route: 048
     Dates: start: 201202, end: 20141111
  9. EPLERENONE (EPLERENONE) UNKNOWN [Suspect]
     Active Substance: EPLERENONE
     Indication: CARDIAC FAILURE CHRONIC
     Dosage: 1 DF, QD, ORAL
     Route: 048
     Dates: start: 20121220, end: 20130117

REACTIONS (4)
  - Sudden cardiac death [None]
  - Loss of consciousness [None]
  - Obstructive airways disorder [None]
  - Off label use [None]

NARRATIVE: CASE EVENT DATE: 20140703
